FAERS Safety Report 16208148 (Version 1)
Quarter: 2019Q2

REPORT INFORMATION
  Report Type: Report from Study
  Country: IT (occurrence: IT)
  Receive Date: 20190417
  Receipt Date: 20190417
  Transmission Date: 20190711
  Serious: Yes (Hospitalization)
  Sender: FDA-Public Use
  Company Number: IT-BAYER-2019-077498

PATIENT
  Age: 71 Year
  Sex: Female

DRUGS (5)
  1. REPAGLINIDE. [Concomitant]
     Active Substance: REPAGLINIDE
     Indication: DIABETES MELLITUS
     Dosage: 6 MG, QD
  2. ENALAPRIL [Concomitant]
     Active Substance: ENALAPRIL
     Indication: HYPERTENSION
     Dosage: 20 MG, QD
  3. CARDIOASPIRIN [Suspect]
     Active Substance: ASPIRIN
     Dosage: UNK
  4. OMEPRAZOLE. [Concomitant]
     Active Substance: OMEPRAZOLE
     Dosage: UNK
  5. TORVAST [Concomitant]
     Active Substance: ATORVASTATIN
     Indication: DYSLIPIDAEMIA
     Dosage: 40 MG, QD

REACTIONS (4)
  - Loss of consciousness [Unknown]
  - Confusional state [Unknown]
  - Cerebral haemorrhage [Unknown]
  - Vertigo [Unknown]

NARRATIVE: CASE EVENT DATE: 20190107
